FAERS Safety Report 23488100 (Version 3)
Quarter: 2025Q1

REPORT INFORMATION
  Report Type: Report from Study
  Country: TR (occurrence: TR)
  Receive Date: 20240206
  Receipt Date: 20250221
  Transmission Date: 20250408
  Serious: Yes (Death, Hospitalization)
  Sender: ABBVIE
  Company Number: TR-ABBVIE-5619655

PATIENT
  Sex: Female
  Weight: 85 kg

DRUGS (4)
  1. CARBIDOPA\LEVODOPA [Suspect]
     Active Substance: CARBIDOPA\LEVODOPA
     Indication: Parkinson^s disease
     Route: 050
     Dates: start: 20190312
  2. CARBIDOPA\LEVODOPA [Suspect]
     Active Substance: CARBIDOPA\LEVODOPA
  3. BENSERAZIDE HYDROCHLORIDE\LEVODOPA [Concomitant]
     Active Substance: BENSERAZIDE HYDROCHLORIDE\LEVODOPA
     Indication: Parkinson^s disease
     Dosage: LEVODOPA + BENSERAZIDE (MADOPAR HBS)
     Route: 048
     Dates: start: 2017
  4. AMANTADINE SULFATE [Concomitant]
     Active Substance: AMANTADINE SULFATE
     Indication: Parkinson^s disease
     Route: 048
     Dates: start: 2017

REACTIONS (2)
  - General physical health deterioration [Fatal]
  - Decubitus ulcer [Not Recovered/Not Resolved]
